FAERS Safety Report 9485600 (Version 4)
Quarter: 2014Q3

REPORT INFORMATION
  Report Type: Report from Study
  Country: GB (occurrence: GB)
  Receive Date: 20130829
  Receipt Date: 20140715
  Transmission Date: 20150326
  Serious: Yes (Death, Hospitalization)
  Sender: FDA-Public Use
  Company Number: GB-ROCHE-1266516

PATIENT
  Age: 88 Year
  Sex: Female
  Weight: 51.7 kg

DRUGS (16)
  1. LEVOTHYROXINE [Concomitant]
     Active Substance: LEVOTHYROXINE
     Route: 065
     Dates: start: 20121002
  2. DERMOVATE [Concomitant]
     Active Substance: CLOBETASOL
     Route: 065
     Dates: start: 20121002
  3. LATANOPROST. [Concomitant]
     Active Substance: LATANOPROST
     Route: 065
     Dates: start: 20121002
  4. OMEPRAZOLE. [Concomitant]
     Active Substance: OMEPRAZOLE
     Route: 065
     Dates: start: 20120720, end: 20120930
  5. OMEPRAZOLE. [Concomitant]
     Active Substance: OMEPRAZOLE
     Route: 065
     Dates: start: 20121002
  6. NEFOPAM [Concomitant]
     Active Substance: NEFOPAM
     Route: 065
     Dates: start: 20100420
  7. EPADERM [Concomitant]
     Route: 065
     Dates: start: 20120416
  8. RANIBIZUMAB [Suspect]
     Active Substance: RANIBIZUMAB
     Route: 050
     Dates: start: 20120809, end: 20120809
  9. LATANOPROST. [Concomitant]
     Active Substance: LATANOPROST
     Route: 065
     Dates: start: 20120611
  10. OMEPRAZOLE. [Concomitant]
     Active Substance: OMEPRAZOLE
     Route: 065
     Dates: start: 20120626
  11. LEVOTHYROXINE [Concomitant]
     Active Substance: LEVOTHYROXINE
     Route: 065
     Dates: start: 20050601, end: 20120930
  12. AZOPT [Concomitant]
     Active Substance: BRINZOLAMIDE
     Route: 065
     Dates: start: 20120611
  13. RANIBIZUMAB [Suspect]
     Active Substance: RANIBIZUMAB
     Indication: AGE-RELATED MACULAR DEGENERATION
     Route: 050
     Dates: start: 20100705, end: 20120809
  14. DERMOVATE [Concomitant]
     Active Substance: CLOBETASOL
     Route: 065
     Dates: start: 20120618
  15. AZOPT [Concomitant]
     Active Substance: BRINZOLAMIDE
     Route: 065
     Dates: start: 20121002
  16. EPADERM [Concomitant]
     Route: 065
     Dates: start: 20120210

REACTIONS (14)
  - Nodule [Unknown]
  - Breast cancer metastatic [Fatal]
  - Confusional state [Unknown]
  - Diverticulum [Unknown]
  - Breast cancer [Fatal]
  - Pneumothorax [Unknown]
  - Musculoskeletal chest pain [Unknown]
  - Dyspnoea [Unknown]
  - General physical health deterioration [Unknown]
  - Rib fracture [Unknown]
  - Pleural effusion [Fatal]
  - Spinal pain [Unknown]
  - Arthralgia [Unknown]
  - Spinal compression fracture [Unknown]

NARRATIVE: CASE EVENT DATE: 20131003
